FAERS Safety Report 9322748 (Version 4)
Quarter: 2013Q4

REPORT INFORMATION
  Report Type: Spontaneous
  Country: US (occurrence: US)
  Receive Date: 20130601
  Receipt Date: 20131227
  Transmission Date: 20140711
  Serious: Yes (Other)
  Sender: FDA-Public Use
  Company Number: US-ASTRAZENECA-2013SE38707

PATIENT
  Age: 79 Year
  Sex: Female
  Weight: 90.7 kg

DRUGS (32)
  1. NEXIUM [Suspect]
     Indication: GASTROOESOPHAGEAL REFLUX DISEASE
     Route: 048
     Dates: end: 201106
  2. NEXIUM [Suspect]
     Indication: GASTROOESOPHAGEAL REFLUX DISEASE
     Route: 048
     Dates: start: 200410, end: 2011
  3. NEXIUM [Suspect]
     Indication: GASTROOESOPHAGEAL REFLUX DISEASE
     Route: 048
     Dates: start: 20041019
  4. NEXIUM [Suspect]
     Indication: GASTROOESOPHAGEAL REFLUX DISEASE
     Route: 048
     Dates: start: 2005, end: 2011
  5. NEXIUM [Suspect]
     Indication: GASTROOESOPHAGEAL REFLUX DISEASE
     Route: 048
     Dates: start: 20060501
  6. NEXIUM [Suspect]
     Indication: GASTROOESOPHAGEAL REFLUX DISEASE
     Route: 048
     Dates: start: 2007, end: 2008
  7. NEXIUM [Suspect]
     Indication: GASTROOESOPHAGEAL REFLUX DISEASE
     Route: 048
     Dates: start: 20080505
  8. NEXIUM [Suspect]
     Indication: GASTROOESOPHAGEAL REFLUX DISEASE
     Route: 048
     Dates: start: 2009, end: 2011
  9. PRILOSEC [Suspect]
     Indication: GASTROOESOPHAGEAL REFLUX DISEASE
     Route: 048
     Dates: start: 1998
  10. PREVACID [Concomitant]
  11. TUMS [Concomitant]
     Dosage: AS NEEDED
  12. ROLAIDS [Concomitant]
     Dosage: AS NEEDED
  13. MILK OF MAGNESIA [Concomitant]
     Dosage: AS NEEDED
  14. ATENOLOL [Concomitant]
     Indication: CARDIAC DISORDER
     Dates: start: 20060201
  15. PLAVIX [Concomitant]
     Indication: CARDIAC DISORDER
     Dates: start: 20060201
  16. LEVOTHYROXINE [Concomitant]
     Indication: THYROID DISORDER
     Dates: start: 20060201
  17. ASA [Concomitant]
     Dates: start: 20060501
  18. ASA [Concomitant]
  19. VALIUM [Concomitant]
     Indication: SLEEP DISORDER
     Dates: start: 20060501
  20. CIPROFLOXACIN [Concomitant]
     Indication: URINARY TRACT INFECTION
     Dates: start: 20060721
  21. CORDARONE/PACERONE [Concomitant]
     Indication: CARDIAC DISORDER
     Dates: start: 20070112
  22. COUMADIN/WARFARIN [Concomitant]
     Indication: CARDIAC DISORDER
     Dates: start: 20070911
  23. LANOXIN/DIGOXIN [Concomitant]
     Indication: CARDIAC DISORDER
     Dates: start: 20071105
  24. LASIX/FUROSEMIDE [Concomitant]
     Indication: CARDIAC DISORDER
     Dates: start: 20080108
  25. ECOTIN [Concomitant]
     Indication: CARDIAC DISORDER
  26. LISINOPRIL [Concomitant]
     Indication: CARDIAC DISORDER
     Dates: start: 20130813
  27. CARVEDILOL [Concomitant]
  28. PREDNISONE [Concomitant]
     Dates: start: 19990612
  29. MEGESTROL [Concomitant]
     Route: 048
     Dates: start: 20120407
  30. CYCLOBENZAPRINE [Concomitant]
     Dates: start: 20101116
  31. RANITIDINE [Concomitant]
     Indication: GASTROOESOPHAGEAL REFLUX DISEASE
     Dates: start: 200201, end: 2003
  32. FOSAMAX [Concomitant]
     Indication: OSTEOPOROSIS

REACTIONS (25)
  - Cerebrovascular accident [Unknown]
  - Transient ischaemic attack [Unknown]
  - Fractured sacrum [Unknown]
  - Osteoporosis [Unknown]
  - Wrist fracture [Unknown]
  - Spinal compression fracture [Unknown]
  - Thoracic vertebral fracture [Unknown]
  - Back injury [Unknown]
  - Radius fracture [Unknown]
  - Lumbar vertebral fracture [Unknown]
  - Ankle fracture [Unknown]
  - Joint injury [Unknown]
  - Neck injury [Unknown]
  - Limb injury [Unknown]
  - Arthritis [Unknown]
  - Cataract [Unknown]
  - Hypothyroidism [Unknown]
  - Humerus fracture [Unknown]
  - Osteopenia [Unknown]
  - Intervertebral disc protrusion [Unknown]
  - Intervertebral disc degeneration [Unknown]
  - Injury [Unknown]
  - Fall [Unknown]
  - Bone disorder [Unknown]
  - Spinal osteoarthritis [Unknown]
